FAERS Safety Report 7393060-X (Version None)
Quarter: 2011Q2

REPORT INFORMATION
  Report Type: 
  Country: None (occurrence: None)
  Receive Date: 20110404
  Receipt Date: 20110329
  Transmission Date: 20111010
  Serious: Yes (Hospitalization)
  Sender: FDA-Public Use
  Company Number: DE-ALLERGAN-1103290US

PATIENT
  Age: 80 Year
  Sex: Female

DRUGS (3)
  1. OZURDEX [Suspect]
     Indication: RETINAL VEIN OCCLUSION
     Dosage: UNK
     Route: 031
     Dates: start: 20110204, end: 20110204
  2. CONCOR [Concomitant]
  3. COSOPT [Concomitant]

REACTIONS (3)
  - INTRAOCULAR PRESSURE INCREASED [None]
  - EYE INFLAMMATION [None]
  - HYPERTENSION [None]
